FAERS Safety Report 4421132-8 (Version None)
Quarter: 2004Q3

REPORT INFORMATION
  Report Type: 
  Country: None (occurrence: None)
  Receive Date: 20040804
  Receipt Date: 20040723
  Transmission Date: 20050211
  Serious: Yes (Other)
  Sender: FDA-Public Use
  Company Number: 208132

PATIENT
  Age: 62 Year
  Sex: Female

DRUGS (1)
  1. RITUXAN [Suspect]
     Indication: NON-HODGKIN'S LYMPHOMA
     Dosage: IV DRIP
     Route: 041
     Dates: start: 20020701, end: 20030101

REACTIONS (1)
  - ANAPHYLACTIC REACTION [None]
